FAERS Safety Report 5121714-4 (Version None)
Quarter: 2006Q4

REPORT INFORMATION
  Report Type: 
  Country: None (occurrence: None)
  Receive Date: 20061006
  Receipt Date: 20060928
  Transmission Date: 20070319
  Serious: Yes (Death, Hospitalization)
  Sender: FDA-Public Use
  Company Number: FR-AVENTIS-200613342FR

PATIENT
  Age: 84 Year
  Sex: Female

DRUGS (2)
  1. OFLOCET [Suspect]
     Indication: LYMPHANGITIS
     Route: 048
     Dates: start: 20060901, end: 20060905
  2. RIFADIN [Suspect]
     Indication: LYMPHANGITIS
     Route: 048
     Dates: start: 20060901, end: 20060905

REACTIONS (8)
  - BLOOD ALKALINE PHOSPHATASE INCREASED [None]
  - BLOOD BILIRUBIN INCREASED [None]
  - CARDIAC ARREST [None]
  - CHOLESTASIS [None]
  - CIRCULATORY COLLAPSE [None]
  - GAMMA-GLUTAMYLTRANSFERASE INCREASED [None]
  - JAUNDICE [None]
  - RENAL FAILURE [None]
